FAERS Safety Report 4765182-0 (Version None)
Quarter: 2005Q3

REPORT INFORMATION
  Report Type: 
  Country: None (occurrence: None)
  Receive Date: 20050906
  Receipt Date: 20050818
  Transmission Date: 20060218
  Serious: Yes (Other)
  Sender: FDA-Public Use
  Company Number: US_0405102707

PATIENT
  Age: 72 Year
  Sex: Female
  Weight: 52 kg

DRUGS (5)
  1. EVISTA [Suspect]
     Indication: OSTEOPOROSIS
     Dosage: 60 MG/1 DAY
  2. FORTEO [Suspect]
     Indication: OSTEOPOROSIS
     Dosage: 20 UG/1 DAY
     Dates: start: 20040101
  3. FOSAMAX [Concomitant]
  4. CALCIUM CARBONATE W/VITAMINS D NOS [Concomitant]
  5. ACTONEL [Concomitant]

REACTIONS (9)
  - BLOOD CALCIUM INCREASED [None]
  - BODY HEIGHT DECREASED [None]
  - BONE DENSITY DECREASED [None]
  - BONE PAIN [None]
  - LUMBAR VERTEBRAL FRACTURE [None]
  - MUSCLE SPASMS [None]
  - PAIN [None]
  - PHARMACEUTICAL PRODUCT COMPLAINT [None]
  - THORACIC VERTEBRAL FRACTURE [None]
